FAERS Safety Report 8759172 (Version 2)
Quarter: 2012Q4

REPORT INFORMATION
  Report Type: 
  Country: DE (occurrence: DE)
  Receive Date: 20120829
  Receipt Date: 20120917
  Transmission Date: 20130627
  Serious: No
  Sender: FDA-Public Use
  Company Number: DE-JNJFOC-20120712060

PATIENT
  Age: 93 Year
  Sex: Female

DRUGS (1)
  1. DUROGESIC SMAT [Suspect]
     Indication: PAIN
     Route: 062
     Dates: start: 20120628, end: 20120629

REACTIONS (3)
  - Dermatitis contact [Unknown]
  - Product adhesion issue [Unknown]
  - Drug administered at inappropriate site [Unknown]
